FAERS Safety Report 7780051-X (Version None)
Quarter: 2011Q3

REPORT INFORMATION
  Report Type: 
  Country: None (occurrence: None)
  Receive Date: 20110922
  Receipt Date: 20110908
  Transmission Date: 20111222
  Serious: No
  Sender: FDA-Public Use
  Company Number: 2011CP000145

PATIENT
  Age: 58 Year
  Sex: Female

DRUGS (2)
  1. ACETAMINOPHEN [Suspect]
     Indication: RENAL COLIC
     Dosage: 1 GRAM, AS NECESSARY, IV
     Route: 042
     Dates: start: 20110903
  2. KETOPROFEN [Concomitant]

REACTIONS (4)
  - PRESYNCOPE [None]
  - ASPARTATE AMINOTRANSFERASE INCREASED [None]
  - HYPOTENSION [None]
  - ALANINE AMINOTRANSFERASE INCREASED [None]
